FAERS Safety Report 7539528-4 (Version None)
Quarter: 2011Q2

REPORT INFORMATION
  Report Type: 
  Country: None (occurrence: None)
  Receive Date: 20110610
  Receipt Date: 20110601
  Transmission Date: 20111010
  Serious: Yes (Life-Threatening)
  Sender: FDA-Public Use
  Company Number: US-EISAI INC-E3810-04727-SPO-US

PATIENT
  Sex: Female

DRUGS (4)
  1. AVAPRO [Concomitant]
     Indication: HYPERTENSION
  2. PRAVASTATIN [Concomitant]
     Indication: HYPERTENSION
  3. ACIPHEX [Suspect]
     Route: 048
     Dates: start: 20091203, end: 20110525
  4. TOPROL-XL [Concomitant]
     Indication: HYPERTENSION

REACTIONS (2)
  - DIZZINESS [None]
  - LOSS OF CONSCIOUSNESS [None]
